FAERS Safety Report 12991806 (Version 2)
Quarter: 2016Q4

REPORT INFORMATION
  Report Type: Spontaneous
  Country: US (occurrence: US)
  Receive Date: 20161201
  Receipt Date: 20161209
  Transmission Date: 20170207
  Serious: No
  Sender: FDA-Public Use
  Company Number: US-MEDA-2016110046

PATIENT
  Age: 48 Year
  Sex: Male
  Weight: 98 kg

DRUGS (3)
  1. DYMISTA [Suspect]
     Active Substance: AZELASTINE HYDROCHLORIDE\FLUTICASONE PROPIONATE
     Indication: RHINITIS ALLERGIC
     Dates: start: 201608, end: 20161118
  2. ZYRTEC [Concomitant]
     Active Substance: CETIRIZINE HYDROCHLORIDE
  3. FLONASE [Concomitant]
     Active Substance: FLUTICASONE PROPIONATE
     Indication: RHINITIS ALLERGIC
     Dates: end: 2016

REACTIONS (8)
  - Chest discomfort [Unknown]
  - Ear pain [Recovering/Resolving]
  - Secretion discharge [Recovering/Resolving]
  - Ear infection [Recovering/Resolving]
  - Upper respiratory tract infection [Recovering/Resolving]
  - Fungal infection [Unknown]
  - Chest pain [Recovering/Resolving]
  - Tonsillar hypertrophy [Recovering/Resolving]

NARRATIVE: CASE EVENT DATE: 2016
